FAERS Safety Report 21636563 (Version 1)
Quarter: 2022Q4

REPORT INFORMATION
  Report Type: Report from Study
  Country: US (occurrence: US)
  Receive Date: 20221124
  Receipt Date: 20221124
  Transmission Date: 20230113
  Serious: No
  Sender: FDA-Public Use
  Company Number: US-ABBVIE-22K-163-4435977-00

PATIENT
  Sex: Male

DRUGS (4)
  1. IMBRUVICA [Suspect]
     Active Substance: IBRUTINIB
     Indication: B-cell small lymphocytic lymphoma
     Route: 048
  2. Moderna COVID19 vaccine [Concomitant]
     Indication: COVID-19 immunisation
     Dosage: ONE DOSE ONCE
     Route: 030
  3. Moderna COVID19 vaccine [Concomitant]
     Indication: COVID-19 immunisation
     Dosage: ONE DOSE ONCE
     Route: 030
  4. Moderna COVID19 vaccine [Concomitant]
     Indication: COVID-19 immunisation
     Dosage: ONE DOSE ONCE, BOOSTER
     Route: 030

REACTIONS (5)
  - Haemorrhage [Recovering/Resolving]
  - Impaired healing [Recovering/Resolving]
  - SARS-CoV-2 test positive [Recovered/Resolved]
  - Skin laceration [Recovering/Resolving]
  - Increased tendency to bruise [Recovering/Resolving]

NARRATIVE: CASE EVENT DATE: 20220101
